FAERS Safety Report 6426572-3 (Version None)
Quarter: 2009Q4

REPORT INFORMATION
  Report Type: 
  Country: None (occurrence: None)
  Receive Date: 20091104
  Receipt Date: 20091026
  Transmission Date: 20100525
  Serious: Yes (Hospitalization)
  Sender: FDA-Public Use
  Company Number: JP-BAYER-200913259BYL

PATIENT
  Age: 72 Year
  Sex: Male
  Weight: 70 kg

DRUGS (4)
  1. NEXAVAR [Suspect]
     Indication: HEPATIC NEOPLASM MALIGNANT
     Dosage: TOTAL DAILY DOSE: 400 MG  UNIT DOSE: 200 MG
     Route: 048
     Dates: start: 20090831, end: 20090904
  2. NOVORAPID [Concomitant]
     Route: 058
     Dates: start: 20040101
  3. LANTUS [Concomitant]
     Route: 058
     Dates: start: 20040101
  4. MONILAC [Concomitant]
     Route: 048
     Dates: start: 20090909

REACTIONS (3)
  - ABDOMINAL PAIN [None]
  - HEPATIC FUNCTION ABNORMAL [None]
  - OESOPHAGEAL VARICES HAEMORRHAGE [None]
